FAERS Safety Report 5020010-3 (Version None)
Quarter: 2006Q2

REPORT INFORMATION
  Report Type: 
  Country: None (occurrence: None)
  Receive Date: 20060607
  Receipt Date: 20060522
  Transmission Date: 20061013
  Serious: Yes (Disabling)
  Sender: FDA-Public Use
  Company Number: FI-MERCK-0605FIN00012

PATIENT
  Age: 35 Year
  Sex: Male

DRUGS (2)
  1. PROPECIA [Suspect]
     Indication: ALOPECIA
     Route: 048
     Dates: start: 19990101, end: 20060516
  2. MINOXIDIL [Suspect]
     Indication: ALOPECIA
     Route: 061
     Dates: start: 20030101, end: 20060516

REACTIONS (8)
  - ATTENTION DEFICIT/HYPERACTIVITY DISORDER [None]
  - BRAIN COMPRESSION [None]
  - DECREASED ACTIVITY [None]
  - DERMATITIS ALLERGIC [None]
  - DRY SKIN [None]
  - HALLUCINATION [None]
  - SKIN DISORDER [None]
  - TESTIS DISCOMFORT [None]
